FAERS Safety Report 8543706-5 (Version None)
Quarter: 2012Q3

REPORT INFORMATION
  Report Type: 
  Country: None (occurrence: None)
  Receive Date: 20120719
  Receipt Date: 20120719
  Transmission Date: 20120928
  Serious: Yes (Death)
  Sender: FDA-Public Use
  Company Number: None

PATIENT
  Age: 89 Year
  Sex: Male

DRUGS (2)
  1. LUCENTIS [Suspect]
     Indication: AGE-RELATED MACULAR DEGENERATION
     Dosage: 1 EVERY 4 WEEKS INTRAOCULAR
     Route: 031
     Dates: start: 20080612, end: 20111222
  2. EYLEA  2 MG REGENERON [Suspect]
     Indication: AGE-RELATED MACULAR DEGENERATION
     Dosage: 1 EVERY 4 WEEKS INTRAOCULAR
     Route: 031
     Dates: start: 20120125, end: 20120521

REACTIONS (1)
  - DEATH [None]
